FAERS Safety Report 15963057 (Version 1)
Quarter: 2019Q1

REPORT INFORMATION
  Report Type: Spontaneous
  Country: DE (occurrence: DE)
  Receive Date: 20190214
  Receipt Date: 20190214
  Transmission Date: 20190417
  Serious: Yes (Other)
  Sender: FDA-Public Use
  Company Number: DE-TEVA-2019-DE-1010699

PATIENT
  Age: 44 Year
  Sex: Male
  Weight: 70 kg

DRUGS (1)
  1. PENTOXIFYLLIN-RATIOPHARM 600MG RETARDTABLETTEN [Suspect]
     Active Substance: PENTOXIFYLLINE
     Indication: TINNITUS
     Dosage: 2X1 PRESCRIBED
     Route: 065
     Dates: start: 20190115, end: 20190115

REACTIONS (6)
  - Asthenia [Unknown]
  - Syncope [Unknown]
  - Dizziness [Unknown]
  - Diarrhoea [Unknown]
  - Tremor [Unknown]
  - Hyperhidrosis [Unknown]

NARRATIVE: CASE EVENT DATE: 20190115
